FAERS Safety Report 10399072 (Version 1)
Quarter: 2014Q3

REPORT INFORMATION
  Report Type: Spontaneous
  Country: US (occurrence: None)
  Receive Date: 20140818
  Receipt Date: 20140818
  Transmission Date: 20150326
  Serious: No
  Sender: FDA-Public Use
  Company Number: None

PATIENT

DRUGS (2)
  1. LANCOME PARIS RENERGIE LIFT MULTI ACTION ALL [Suspect]
     Active Substance: AVOBENZONE\OCTISALATE\OCTOCRYLENE
     Indication: DRY SKIN PROPHYLAXIS
     Dates: start: 20140816, end: 20140816
  2. LANCOME PARIS RENERGIE LIFT MULTI ACTION ALL [Suspect]
     Active Substance: AVOBENZONE\OCTISALATE\OCTOCRYLENE
     Indication: SKIN ATROPHY
     Dates: start: 20140816, end: 20140816

REACTIONS (9)
  - Headache [None]
  - Chest discomfort [None]
  - Dyspnoea [None]
  - Eye irritation [None]
  - Visual impairment [None]
  - Cough [None]
  - Photophobia [None]
  - Hypersensitivity [None]
  - Lacrimation increased [None]

NARRATIVE: CASE EVENT DATE: 20140816
